FAERS Safety Report 25762353 (Version 1)
Quarter: 2025Q3

REPORT INFORMATION
  Report Type: Report from Study
  Country: US (occurrence: US)
  Receive Date: 20250904
  Receipt Date: 20250904
  Transmission Date: 20251021
  Serious: Yes (Hospitalization)
  Sender: MARINUS PHARMACEUTICALS
  Company Number: US-MARINUS PHARMACEUTICALS, INC.-MAR2025000208

PATIENT

DRUGS (1)
  1. GANAXOLONE [Suspect]
     Active Substance: GANAXOLONE
     Indication: Product used for unknown indication
     Route: 048

REACTIONS (4)
  - Seizure [Unknown]
  - Aspiration [Unknown]
  - Choking [Unknown]
  - Pneumonia [Unknown]
